FAERS Safety Report 21207491 (Version 3)
Quarter: 2023Q2

REPORT INFORMATION
  Report Type: Report from Study
  Country: FR (occurrence: None)
  Receive Date: 20220812
  Receipt Date: 20230526
  Transmission Date: 20230721
  Serious: Yes (Other)
  Sender: FDA-Public Use
  Company Number: FR-Merck Healthcare KGaA-9342804

PATIENT
  Age: 58 Year
  Sex: Male
  Weight: 80 kg

DRUGS (6)
  1. AVELUMAB [Suspect]
     Active Substance: AVELUMAB
     Indication: Oropharyngeal squamous cell carcinoma
     Dosage: 800 MG
     Route: 042
     Dates: start: 20200518, end: 20200518
  2. AVELUMAB [Suspect]
     Active Substance: AVELUMAB
     Dosage: 790 MG
     Route: 042
     Dates: start: 20200608, end: 20200608
  3. CETUXIMAB [Suspect]
     Active Substance: CETUXIMAB
     Indication: Oropharyngeal squamous cell carcinoma
     Dosage: 800 MG
     Route: 041
     Dates: start: 20200518
  4. CETUXIMAB [Suspect]
     Active Substance: CETUXIMAB
     Dosage: 497 MG
     Route: 041
     Dates: start: 20200525
  5. CETUXIMAB [Suspect]
     Active Substance: CETUXIMAB
     Dosage: 497 MG
     Route: 041
     Dates: start: 20200608
  6. DAFALGAN CODEINE [Concomitant]
     Active Substance: ACETAMINOPHEN\CODEINE PHOSPHATE
     Indication: Product used for unknown indication

REACTIONS (1)
  - Hepatocellular injury [Recovered/Resolved]

NARRATIVE: CASE EVENT DATE: 20200612
